FAERS Safety Report 10077737 (Version 2)
Quarter: 2014Q2

REPORT INFORMATION
  Report Type: Spontaneous
  Country: US (occurrence: US)
  Receive Date: 20140414
  Receipt Date: 20140520
  Transmission Date: 20141212
  Serious: Yes (Hospitalization, Other)
  Sender: FDA-Public Use
  Company Number: US-ELI_LILLY_AND_COMPANY-US201404001672

PATIENT
  Age: 61 Year
  Sex: Male
  Weight: 98.41 kg

DRUGS (2)
  1. HUMALOG LISPRO [Suspect]
     Indication: TYPE 1 DIABETES MELLITUS
     Dosage: UNK
     Route: 058
  2. BABY ASPIRIN [Concomitant]

REACTIONS (1)
  - Diabetic ketoacidosis [Recovered/Resolved]
